FAERS Safety Report 6666829-4 (Version None)
Quarter: 2010Q2

REPORT INFORMATION
  Report Type: 
  Country: None (occurrence: None)
  Receive Date: 20100401
  Receipt Date: 20100401
  Transmission Date: 20101027
  Serious: Yes (Hospitalization)
  Sender: FDA-Public Use
  Company Number: None

PATIENT
  Age: 69 Year
  Sex: Male
  Weight: 84 kg

DRUGS (2)
  1. BENDAMUSTINE [Suspect]
     Indication: NEOPLASM
     Dosage: 200 MG EVERY DAY IV
     Route: 042
     Dates: start: 20100304, end: 20100305
  2. RITUXIMAB [Suspect]
     Indication: NEOPLASM
     Dosage: 100 MG ONCE IV
     Route: 042
     Dates: start: 20100304, end: 20100304

REACTIONS (1)
  - FEBRILE NEUTROPENIA [None]
